FAERS Safety Report 6914183-2 (Version None)
Quarter: 2010Q3

REPORT INFORMATION
  Report Type: 
  Country: None (occurrence: None)
  Receive Date: 20100809
  Receipt Date: 20100730
  Transmission Date: 20110219
  Serious: Yes (Hospitalization)
  Sender: FDA-Public Use
  Company Number: A0814507A

PATIENT
  Sex: Male

DRUGS (1)
  1. AVANDIA [Suspect]
     Route: 048
     Dates: start: 20030301, end: 20070101

REACTIONS (2)
  - CORONARY ARTERIAL STENT INSERTION [None]
  - TRANSIENT ISCHAEMIC ATTACK [None]
